FAERS Safety Report 10100332 (Version 2)
Quarter: 2014Q4

REPORT INFORMATION
  Report Type: Spontaneous
  Country: JP (occurrence: JP)
  Receive Date: 20140423
  Receipt Date: 20141014
  Transmission Date: 20150528
  Serious: Yes (Death, Hospitalization)
  Sender: FDA-Public Use
  Company Number: JP-ELI_LILLY_AND_COMPANY-JP201404006509

PATIENT
  Age: 70 Year
  Sex: Male
  Weight: 54 kg

DRUGS (10)
  1. VITAMIN B12 [Concomitant]
     Active Substance: CYANOCOBALAMIN
     Indication: PROPHYLAXIS
     Dosage: 1 MG, QD
     Route: 030
     Dates: start: 20110404
  2. ALIMTA [Suspect]
     Active Substance: PEMETREXED DISODIUM
     Indication: LUNG ADENOCARCINOMA STAGE IV
     Dosage: 800 MG, 21-DAY-CYCLE
     Route: 042
     Dates: start: 20110415, end: 20110513
  3. RINDERON                           /00008501/ [Concomitant]
     Indication: BRAIN OEDEMA
     Dosage: 2 MG, QD
     Route: 048
     Dates: start: 20110417, end: 20110513
  4. PREDONINE [Concomitant]
     Active Substance: PREDNISOLONE\PREDNISOLONE ACETATE\PREDNISOLONE SODIUM SUCCINATE
     Indication: BRAIN OEDEMA
     Dosage: 30 MG, QD
     Route: 048
     Dates: end: 20110416
  5. OSPAIN [Concomitant]
     Active Substance: ETODOLAC
     Indication: CANCER PAIN
     Dosage: 200 MG, BID
     Route: 048
  6. REBAMIPIDE [Concomitant]
     Active Substance: REBAMIPIDE
     Indication: GASTRITIS
     Dosage: 100 MG, BID
     Route: 048
  7. METHYCOBIDE [Concomitant]
     Indication: PRODUCT USED FOR UNKNOWN INDICATION
     Dosage: 500 UG, TID
     Route: 048
  8. PANVITAN                           /00466101/ [Concomitant]
     Indication: PROPHYLAXIS
     Dosage: 1 G, QD
     Route: 048
     Dates: start: 20110404
  9. BERAPROST SODIUM [Concomitant]
     Active Substance: BERAPROST SODIUM
     Indication: PRODUCT USED FOR UNKNOWN INDICATION
     Dosage: 20 UG, TID
     Route: 048
  10. RINDERON                           /00008501/ [Concomitant]
     Dosage: 1 MG, QD
     Route: 048
     Dates: start: 20110514, end: 20110523

REACTIONS (2)
  - Interstitial lung disease [Recovering/Resolving]
  - Lung neoplasm malignant [Fatal]

NARRATIVE: CASE EVENT DATE: 20110523
